FAERS Safety Report 7721283-6 (Version None)
Quarter: 2011Q3

REPORT INFORMATION
  Report Type: 
  Country: None (occurrence: None)
  Receive Date: 20110831
  Receipt Date: 20110823
  Transmission Date: 20111222
  Serious: Yes (Other)
  Sender: FDA-Public Use
  Company Number: PHHY2011AU76259

PATIENT
  Sex: Female

DRUGS (4)
  1. SANDOSTATIN LAR [Suspect]
     Dosage: 30 MG, UNK
  2. SANDOSTATIN LAR [Suspect]
     Dosage: 10 MG, UNK
  3. LIDOCAINE [Concomitant]
  4. ANTIBIOTICS [Concomitant]

REACTIONS (5)
  - INJECTION SITE SWELLING [None]
  - INJECTION SITE ABSCESS [None]
  - INJECTION SITE WARMTH [None]
  - INJECTION SITE PAIN [None]
  - MALAISE [None]
